FAERS Safety Report 8424994-2 (Version None)
Quarter: 2012Q2

REPORT INFORMATION
  Report Type: 
  Country: None (occurrence: None)
  Receive Date: 20120605
  Receipt Date: 20120605
  Transmission Date: 20120825
  Serious: Yes (Hospitalization)
  Sender: FDA-Public Use
  Company Number: None

PATIENT
  Age: 68 Year
  Sex: Male
  Weight: 74.8435 kg

DRUGS (1)
  1. PENNSAID [Suspect]
     Indication: ARTHRALGIA
     Dosage: 40 DROPS QID
     Dates: start: 20120519, end: 20120526

REACTIONS (2)
  - CELLULITIS [None]
  - JOINT SWELLING [None]
